FAERS Safety Report 8221122-3 (Version None)
Quarter: 2012Q1

REPORT INFORMATION
  Report Type: 
  Country: None (occurrence: None)
  Receive Date: 20120320
  Receipt Date: 20120314
  Transmission Date: 20120608
  Serious: Yes (Other)
  Sender: FDA-Public Use
  Company Number: US-BAYER-201018737NA

PATIENT
  Sex: Male
  Weight: 74.3 kg

DRUGS (33)
  1. PROHANCE [Suspect]
     Indication: IMAGING PROCEDURE
  2. METOPROLOL TARTRATE [Concomitant]
  3. FEXOFENADINE HYDROCHLORIDE [Concomitant]
  4. VENTOLIN HFA [Concomitant]
  5. GLIPIZIDE [Concomitant]
  6. SLOW-K [Concomitant]
  7. MAGNEVIST [Suspect]
     Indication: IMAGING PROCEDURE
  8. OPTIMARK [Suspect]
     Indication: IMAGING PROCEDURE
  9. AMLODIPINE BESYLATE [Concomitant]
  10. SINGULAIR [Concomitant]
  11. PROTONIX [Concomitant]
  12. DOXYCYCLINE AL [Concomitant]
  13. ISOSORBIDE DINITRATE, COMBINATIONS [Concomitant]
  14. LASIX [Concomitant]
  15. NITROGLYCERIN [Concomitant]
  16. PANTOPRAZOLE [Concomitant]
  17. VYTORIN [Concomitant]
  18. NASONEX [Concomitant]
  19. SIMVASTATIN [Concomitant]
  20. ADVAIR DISKUS 100/50 [Concomitant]
  21. RENVELA [Concomitant]
  22. MULTI-VITAMINS [Concomitant]
  23. ATROVENT [Concomitant]
  24. TRAMADOL HCL CF [Concomitant]
  25. ANALGESICS [Concomitant]
  26. OMNISCAN [Suspect]
     Indication: IMAGING PROCEDURE
  27. MULTIHANCE [Suspect]
     Indication: IMAGING PROCEDURE
  28. GADOLINIUM IN UNSPECIFIED DRUG [Suspect]
     Indication: VASCULAR GRAFT
     Dosage: UNK UNK, ONCE
     Dates: start: 20100510, end: 20100510
  29. JANUVIA [Concomitant]
  30. CLONIDINE [Concomitant]
  31. PREDNISONE [Concomitant]
  32. COREG [Concomitant]
  33. HYFLEX-DS [Concomitant]

REACTIONS (8)
  - MOBILITY DECREASED [None]
  - DEFORMITY [None]
  - OEDEMA PERIPHERAL [None]
  - NEPHROGENIC SYSTEMIC FIBROSIS [None]
  - PAIN [None]
  - GENERAL PHYSICAL HEALTH DETERIORATION [None]
  - SCAR [None]
  - FIBROSIS [None]
